FAERS Safety Report 16953004 (Version 1)
Quarter: 2019Q4

REPORT INFORMATION
  Report Type: Spontaneous
  Country: US (occurrence: US)
  Receive Date: 20191023
  Receipt Date: 20191023
  Transmission Date: 20200122
  Serious: No
  Sender: FDA-Public Use
  Company Number: US-LANNETT COMPANY, INC.-US-2019LAN000154

PATIENT

DRUGS (1)
  1. FLUPHENAZINE HYDROCHLORIDE. [Suspect]
     Active Substance: FLUPHENAZINE HYDROCHLORIDE
     Indication: SCHIZOPHRENIA
     Dosage: 15 MG, QD (1X/MORNING; 5MG 2X/HOUR OF SLEEP)
     Route: 048

REACTIONS (3)
  - Cold-stimulus headache [Not Recovered/Not Resolved]
  - Drug ineffective [Not Recovered/Not Resolved]
  - Product administration error [Not Recovered/Not Resolved]
